FAERS Safety Report 25193472 (Version 2)
Quarter: 2025Q2

REPORT INFORMATION
  Report Type: Report from Study
  Country: US (occurrence: US)
  Receive Date: 20250414
  Receipt Date: 20250416
  Transmission Date: 20250716
  Serious: Yes (Life-Threatening)
  Sender: ALEXION PHARMACEUTICALS
  Company Number: US-AstraZeneca-CH-00846733A

PATIENT
  Age: 77 Year
  Weight: 59.864 kg

DRUGS (19)
  1. OLAPARIB [Suspect]
     Active Substance: OLAPARIB
     Dosage: 300 MILLIGRAM, BID
  2. ROSUVASTATIN [Concomitant]
     Active Substance: ROSUVASTATIN
     Route: 065
  3. OMEPRAZOLE [Concomitant]
     Active Substance: OMEPRAZOLE
     Route: 065
  4. ARICEPT [Concomitant]
     Active Substance: DONEPEZIL HYDROCHLORIDE
  5. Benadryl allergy + cold [Concomitant]
  6. CALCITRIOL [Concomitant]
     Active Substance: CALCITRIOL
  7. COLACE [Concomitant]
     Active Substance: DOCUSATE SODIUM
  8. (6S)-5-methyltetrahydrofolate;Betaine;Pyridoxine hydrochloride;Ribofla [Concomitant]
  9. FENTANYL [Concomitant]
     Active Substance: FENTANYL
  10. KLOR-CON [Concomitant]
     Active Substance: POTASSIUM CHLORIDE
  11. LASIX [Concomitant]
     Active Substance: FUROSEMIDE
  12. LEVOTHYROXINE [Concomitant]
     Active Substance: LEVOTHYROXINE
  13. MAGNESIUM [Concomitant]
     Active Substance: MAGNESIUM
  14. METOPROLOL SUCCINATE [Concomitant]
     Active Substance: METOPROLOL SUCCINATE
  15. NALOXONE [Concomitant]
     Active Substance: NALOXONE
  16. NYSTATIN [Concomitant]
     Active Substance: NYSTATIN
  17. PROLIA [Concomitant]
     Active Substance: DENOSUMAB
  18. TRAZODONE [Concomitant]
     Active Substance: TRAZODONE HYDROCHLORIDE
  19. ZOFRAN [Concomitant]
     Active Substance: ONDANSETRON HYDROCHLORIDE

REACTIONS (3)
  - General physical health deterioration [Unknown]
  - Therapeutic response decreased [Unknown]
  - Insurance issue [Unknown]
